FAERS Safety Report 26185189 (Version 1)
Quarter: 2025Q4

REPORT INFORMATION
  Report Type: Spontaneous
  Country: US (occurrence: US)
  Receive Date: 20251222
  Receipt Date: 20251222
  Transmission Date: 20260119
  Serious: No
  Sender: CSL BEHRING
  Company Number: US-BEH-2025228048

PATIENT
  Sex: Male

DRUGS (2)
  1. HIZENTRA [Suspect]
     Active Substance: HUMAN IMMUNOGLOBULIN G
     Indication: Immunodeficiency common variable
     Dosage: 20 G, QOW
     Route: 058
     Dates: start: 202207
  2. HIZENTRA [Suspect]
     Active Substance: HUMAN IMMUNOGLOBULIN G
     Indication: Immunodeficiency common variable
     Dosage: 4 G, QOW
     Route: 058
     Dates: start: 202207

REACTIONS (2)
  - Immunoglobulins decreased [Unknown]
  - Illness [Unknown]
